FAERS Safety Report 14952988 (Version 2)
Quarter: 2018Q2

REPORT INFORMATION
  Report Type: Spontaneous
  Country: PL (occurrence: PL)
  Receive Date: 20180530
  Receipt Date: 20180627
  Transmission Date: 20180711
  Serious: Yes (Other)
  Sender: FDA-Public Use
  Company Number: PL-ANIPHARMA-2018-PL-000019

PATIENT
  Age: 65 Year
  Sex: Female

DRUGS (3)
  1. TAMOXIFEN [Suspect]
     Active Substance: TAMOXIFEN
     Dosage: 20 MG DAILY
     Route: 048
     Dates: start: 200701
  2. ARIMIDEX [Suspect]
     Active Substance: ANASTROZOLE
     Route: 048
     Dates: start: 200506
  3. FASLODEX [Suspect]
     Active Substance: FULVESTRANT
     Dosage: 500 MG MONTHLY
     Route: 030
     Dates: start: 201402

REACTIONS (16)
  - Colon adenoma [Unknown]
  - Hypertension [Unknown]
  - Transaminases increased [Unknown]
  - Malignant pleural effusion [Unknown]
  - Rectal polyp [Unknown]
  - Asthenia [Unknown]
  - Dizziness [Unknown]
  - Diverticulum intestinal [Unknown]
  - Malignant neoplasm progression [Unknown]
  - Nausea [Unknown]
  - Metastases to bone [Unknown]
  - Metastases to liver [Unknown]
  - Rectal adenocarcinoma [Unknown]
  - Dyspnoea exertional [Unknown]
  - Decreased appetite [Unknown]
  - Metastasis [Unknown]

NARRATIVE: CASE EVENT DATE: 201110
